FAERS Safety Report 23897890 (Version 1)
Quarter: 2024Q2

REPORT INFORMATION
  Report Type: Spontaneous
  Country: US (occurrence: US)
  Receive Date: 20240524
  Receipt Date: 20240524
  Transmission Date: 20240715
  Serious: No
  Sender: FDA-Public Use
  Company Number: US-ELI_LILLY_AND_COMPANY-US202405013183

PATIENT

DRUGS (1)
  1. AMYVID [Suspect]
     Active Substance: FLORBETAPIR F-18
     Indication: Neuritic plaques
     Dosage: UNK UNK, UNKNOWN
     Route: 065

REACTIONS (3)
  - Rash macular [Unknown]
  - Injection site discolouration [Unknown]
  - Injection site pain [Unknown]
